FAERS Safety Report 4300572-1 (Version None)
Quarter: 2004Q1

REPORT INFORMATION
  Report Type: 
  Country: None (occurrence: None)
  Receive Date: 20040220
  Receipt Date: 20020404
  Transmission Date: 20041129
  Serious: Yes (Death, Disabling)
  Sender: FDA-Public Use
  Company Number: DE-ROCHE-313443

PATIENT
  Age: 72 Year
  Sex: Male

DRUGS (12)
  1. CELLCEPT [Suspect]
     Route: 048
     Dates: start: 20010215, end: 20010803
  2. CELLCEPT [Suspect]
     Route: 048
     Dates: start: 19970703
  3. CELLCEPT [Suspect]
     Route: 048
  4. PROGRAF [Suspect]
     Route: 048
     Dates: start: 20000715, end: 20001215
  5. SANDIMMUNE [Suspect]
     Route: 048
     Dates: start: 19970703, end: 20000715
  6. SANDIMMUNE [Suspect]
     Route: 048
     Dates: start: 20001215, end: 20010815
  7. PREDNISOLONE [Concomitant]
     Route: 048
     Dates: start: 19970703, end: 20010927
  8. KARVEA [Concomitant]
     Dosage: REDUCED TO 225 MG IN JAN 2001.
  9. LOPRESSOR [Concomitant]
     Dosage: REDUCED TO 100 MG IN JAN 2001.
  10. NEPRESOL [Concomitant]
     Dosage: REDUCED TO 25 MG IN JAN 2001.
  11. LASIX [Concomitant]
     Dates: start: 20010115
  12. ESIDRIX [Concomitant]

REACTIONS (7)
  - ATRIAL FIBRILLATION [None]
  - BLOOD CREATININE INCREASED [None]
  - BLOOD PRESSURE DECREASED [None]
  - BLOOD UREA INCREASED [None]
  - CHOLESTASIS [None]
  - OEDEMA [None]
  - PLEURAL EFFUSION [None]
